FAERS Safety Report 14845258 (Version 1)
Quarter: 2018Q2

REPORT INFORMATION
  Report Type: Spontaneous
  Country: AT (occurrence: AT)
  Receive Date: 20180504
  Receipt Date: 20180504
  Transmission Date: 20180711
  Serious: Yes (Life-Threatening, Hospitalization, Disabling, Other)
  Sender: FDA-Public Use
  Company Number: AT-BRISTOL-MYERS SQUIBB COMPANY-BMS-2018-039666

PATIENT
  Age: 83 Year
  Sex: Male
  Weight: 83 kg

DRUGS (1)
  1. ELIQUIS [Suspect]
     Active Substance: APIXABAN
     Indication: CEREBROVASCULAR ACCIDENT PROPHYLAXIS
     Dosage: 5 MG, BID
     Route: 065
     Dates: start: 201406, end: 20180424

REACTIONS (2)
  - Cerebral haemorrhage [Unknown]
  - Cerebral ventricular rupture [Unknown]

NARRATIVE: CASE EVENT DATE: 201804
